FAERS Safety Report 7145503-4 (Version None)
Quarter: 2010Q4

REPORT INFORMATION
  Report Type: 
  Country: None (occurrence: None)
  Receive Date: 20101122
  Receipt Date: 20101116
  Transmission Date: 20110411
  Serious: Yes (Life-Threatening, Hospitalization, Other)
  Sender: FDA-Public Use
  Company Number: 2010SP026025

PATIENT
  Age: 29 Year
  Sex: Female
  Weight: 81.6475 kg

DRUGS (4)
  1. NUVARING [Suspect]
     Indication: CONTRACEPTION
     Dosage: VAG
     Route: 067
     Dates: start: 20040101, end: 20080101
  2. BLOOD THINNERS [Suspect]
     Indication: PULMONARY EMBOLISM
  3. DARVOCET [Concomitant]
  4. VALIUM [Concomitant]

REACTIONS (22)
  - ABDOMINOPLASTY [None]
  - ABORTION SPONTANEOUS [None]
  - ANAEMIA [None]
  - ANXIETY [None]
  - ATELECTASIS [None]
  - BLOOD SODIUM DECREASED [None]
  - CARDIOMEGALY [None]
  - DEPRESSION [None]
  - DRUG EXPOSURE BEFORE PREGNANCY [None]
  - HIATUS HERNIA [None]
  - NECROSIS [None]
  - OVARIAN CYST [None]
  - PLEURAL EFFUSION [None]
  - PNEUMONIA [None]
  - POST PROCEDURAL COMPLICATION [None]
  - POSTPARTUM DEPRESSION [None]
  - PREGNANCY [None]
  - PULMONARY EMBOLISM [None]
  - PULMONARY INFARCTION [None]
  - PYREXIA [None]
  - UTERINE LEIOMYOMA [None]
  - UTERINE MALPOSITION [None]
